FAERS Safety Report 21683024 (Version 1)
Quarter: 2022Q4

REPORT INFORMATION
  Report Type: Spontaneous
  Country: CN (occurrence: CN)
  Receive Date: 20221205
  Receipt Date: 20221205
  Transmission Date: 20230112
  Serious: Yes (Hospitalization)
  Sender: FDA-Public Use
  Company Number: None

PATIENT
  Age: 48 Year
  Sex: Female
  Weight: 48 kg

DRUGS (11)
  1. CYCLOPHOSPHAMIDE [Suspect]
     Active Substance: CYCLOPHOSPHAMIDE
     Indication: Diffuse large B-cell lymphoma
     Dosage: 1.1 G, ONCE IN 20 DAYS, DILUTED WITH 250 ML OF 0.9 NORMAL SALINE
     Route: 041
     Dates: start: 20220728, end: 20221109
  2. SODIUM CHLORIDE [Suspect]
     Active Substance: SODIUM CHLORIDE
     Indication: Vehicle solution use
     Dosage: 600 ML, ONCE DAILY, USED TO DILUTE 0.6 G RITUXIMAB
     Route: 041
     Dates: start: 20220728, end: 20221114
  3. SODIUM CHLORIDE [Suspect]
     Active Substance: SODIUM CHLORIDE
     Dosage: 50 ML, ONCE DAILY, USED TO DILUTE 2 MG VINCRISTINE
     Route: 041
     Dates: start: 20220728, end: 20221114
  4. RITUXIMAB [Suspect]
     Active Substance: RITUXIMAB
     Indication: B-cell lymphoma
     Dosage: 0.6 G, ONCE IN 20 DAYS, DILUTED WITH 600 ML OF 0.9 % SODIUM CHLORIDE
     Route: 041
     Dates: start: 20220728, end: 20221109
  5. DOXORUBICIN [Suspect]
     Active Substance: DOXORUBICIN
     Indication: B-cell lymphoma
     Dosage: 80 MG, ONCE IN 20 DAYS, DILUTED WITH 100 ML OF 0.9 % NORMAL SALINE
     Route: 041
     Dates: start: 20220728, end: 20221109
  6. VINCRISTINE [Suspect]
     Active Substance: VINCRISTINE
     Indication: B-cell lymphoma
     Dosage: 2 MG, ONCE IN 20 DAYS, DILUTED WITH 50 ML OF 0.9 % SODIUM CHLORIDE
     Route: 041
     Dates: start: 20220728, end: 20221109
  7. PREDNISONE [Concomitant]
     Active Substance: PREDNISONE
     Indication: Adjuvant therapy
     Dosage: 50 MG, TWICE DAILY
     Route: 048
     Dates: start: 20220728, end: 20221114
  8. PREDNISONE [Concomitant]
     Active Substance: PREDNISONE
     Indication: B-cell lymphoma
  9. SODIUM CHLORIDE [Concomitant]
     Active Substance: SODIUM CHLORIDE
     Indication: Vehicle solution use
     Dosage: 250 ML, ONCE IN 20 DAYS, USED TO DILUTE 1.1 G CYCLOPHOSPHAMIDE
     Route: 041
     Dates: start: 20220728, end: 20221109
  10. SODIUM CHLORIDE [Concomitant]
     Active Substance: SODIUM CHLORIDE
     Dosage: 100 ML, ONCE IN 20 DAYS, USED TO DILUTE 80 MG DOXORUBICIN
     Route: 041
     Dates: start: 20220728, end: 20221109
  11. SODIUM CHLORIDE [Concomitant]
     Active Substance: SODIUM CHLORIDE
     Dosage: 500 ML, ONCE IN 20 DAYS
     Route: 041
     Dates: start: 20220728, end: 20221109

REACTIONS (2)
  - White blood cell count decreased [Recovered/Resolved]
  - Neutrophil count decreased [Recovered/Resolved]

NARRATIVE: CASE EVENT DATE: 20220906
